FAERS Safety Report 10186433 (Version 1)
Quarter: 2014Q2

REPORT INFORMATION
  Report Type: Spontaneous
  Country: US (occurrence: US)
  Receive Date: 20140521
  Receipt Date: 20140521
  Transmission Date: 20141212
  Serious: No
  Sender: FDA-Public Use
  Company Number: US-ASTRAZENECA-2013SE89548

PATIENT
  Age: 79 Year
  Sex: Female
  Weight: 59 kg

DRUGS (2)
  1. PULMICORT FLEXHALER [Suspect]
     Indication: ASTHMA
     Dosage: 180 MCG, ONE PUFF DAILY
     Route: 055
     Dates: start: 2013
  2. UNSPECIFIED CHOLESTEROL- LOWERING MEDICATION [Concomitant]

REACTIONS (4)
  - Glaucoma [Not Recovered/Not Resolved]
  - Visual impairment [Unknown]
  - Off label use [Unknown]
  - Intentional product misuse [Recovered/Resolved]
